FAERS Safety Report 11512962 (Version 2)
Quarter: 2015Q3

REPORT INFORMATION
  Report Type: Spontaneous
  Country: US (occurrence: US)
  Receive Date: 20150903
  Receipt Date: 20150903
  Transmission Date: 20151125
  Serious: No
  Sender: FDA-Public Use
  Company Number: US-ELI_LILLY_AND_COMPANY-US201003001937

PATIENT
  Sex: Female

DRUGS (3)
  1. THYROID THERAPY [Concomitant]
     Active Substance: UNSPECIFIED INGREDIENT
  2. ANTIHYPERTENSIVES [Concomitant]
     Active Substance: UNSPECIFIED INGREDIENT
  3. HUMALOG MIX75/25 [Suspect]
     Active Substance: INSULIN LISPRO
     Indication: DIABETES MELLITUS
     Dosage: UNK, AS NEEDED
     Dates: start: 2007

REACTIONS (6)
  - Blood glucose increased [Unknown]
  - Rosacea [Not Recovered/Not Resolved]
  - Erythema [Unknown]
  - Glycosylated haemoglobin increased [Unknown]
  - Diabetes mellitus inadequate control [Unknown]
  - Pruritus [Unknown]
